FAERS Safety Report 11426223 (Version 1)
Quarter: 2015Q3

REPORT INFORMATION
  Report Type: Spontaneous
  Country: US (occurrence: US)
  Receive Date: 20150821
  Receipt Date: 20150821
  Transmission Date: 20151125
  Serious: No
  Sender: FDA-Public Use
  Company Number: US-ELI_LILLY_AND_COMPANY-US201305001227

PATIENT
  Sex: Male

DRUGS (3)
  1. CIALIS [Suspect]
     Active Substance: TADALAFIL
     Dosage: 25 MG, UNK
  2. CIALIS [Suspect]
     Active Substance: TADALAFIL
     Dosage: 30 MG, UNK
  3. CIALIS [Suspect]
     Active Substance: TADALAFIL
     Dosage: 5 MG, QD

REACTIONS (4)
  - Drug ineffective [Unknown]
  - Dyspnoea [Unknown]
  - Overdose [Unknown]
  - Drug tolerance [Unknown]
